FAERS Safety Report 20679708 (Version 1)
Quarter: 2022Q2

REPORT INFORMATION
  Report Type: Other
  Country: US (occurrence: None)
  Receive Date: 20220406
  Receipt Date: 20220406
  Transmission Date: 20220721
  Serious: Yes (Hospitalization)
  Sender: FDA-Public Use
  Company Number: US-ROCHE-3062275

PATIENT
  Sex: Male

DRUGS (1)
  1. XELODA [Suspect]
     Active Substance: CAPECITABINE
     Indication: Colorectal cancer metastatic
     Dosage: TAKE 4 TABLET(S) BY MOUTH TWICE A DAY FOR 2 WEEK(S) ON, 1 WEEK(S) OFF
     Route: 048

REACTIONS (4)
  - Weight decreased [Unknown]
  - Illness [Unknown]
  - Vomiting [Unknown]
  - Therapy change [Unknown]
